FAERS Safety Report 4965774-X (Version None)
Quarter: 2006Q2

REPORT INFORMATION
  Report Type: 
  Country: None (occurrence: None)
  Receive Date: 20060406
  Receipt Date: 20060406
  Transmission Date: 20061013
  Serious: Yes (Hospitalization, Disabling)
  Sender: FDA-Public Use
  Company Number: None

PATIENT
  Age: 45 Year
  Sex: Female
  Weight: 58.9676 kg

DRUGS (1)
  1. OGEN 2.5 [Suspect]
     Indication: HORMONE REPLACEMENT THERAPY
     Dosage: 2.5 MG DAILY ORAL
     Route: 048
     Dates: start: 20000301, end: 20051201

REACTIONS (5)
  - AGEUSIA [None]
  - AUTOIMMUNE DISORDER [None]
  - HYPOAESTHESIA [None]
  - NERVOUS SYSTEM DISORDER [None]
  - SARCOIDOSIS [None]
